FAERS Safety Report 6752781-X (Version None)
Quarter: 2010Q2

REPORT INFORMATION
  Report Type: 
  Country: None (occurrence: None)
  Receive Date: 20100602
  Receipt Date: 20100602
  Transmission Date: 20101027
  Serious: No
  Sender: FDA-Public Use
  Company Number: None

PATIENT
  Sex: Female
  Weight: 90.7194 kg

DRUGS (1)
  1. SEROQUEL [Suspect]
     Dosage: 200MG 3X DAY
     Dates: start: 20090628, end: 20090813

REACTIONS (2)
  - BRAIN INJURY [None]
  - CONVULSION [None]
